FAERS Safety Report 19319693 (Version 1)
Quarter: 2021Q2

REPORT INFORMATION
  Report Type: Spontaneous
  Country: US (occurrence: US)
  Receive Date: 20210527
  Receipt Date: 20210527
  Transmission Date: 20210717
  Serious: No
  Sender: FDA-Public Use
  Company Number: None

PATIENT
  Sex: Female

DRUGS (1)
  1. HUMIRA [Suspect]
     Active Substance: ADALIMUMAB
     Indication: COLITIS ULCERATIVE
     Dosage: OTHER FREQUENCY:2 DAY 1, 1 DAY 15?
     Route: 058
     Dates: start: 202104

REACTIONS (2)
  - Muscle twitching [None]
  - Nervous system disorder [None]
